FAERS Safety Report 9508059 (Version 2)
Quarter: 2013Q4

REPORT INFORMATION
  Report Type: Spontaneous
  Country: AT (occurrence: AT)
  Receive Date: 20130909
  Receipt Date: 20131204
  Transmission Date: 20140711
  Serious: Yes (Other)
  Sender: FDA-Public Use
  Company Number: PHHY2013AT096510

PATIENT
  Sex: 0

DRUGS (1)
  1. DEXAMETHASONE [Suspect]

REACTIONS (2)
  - Thrombocytopenia [Unknown]
  - Leukopenia [Unknown]
